FAERS Safety Report 7927570-0 (Version None)
Quarter: 2011Q4

REPORT INFORMATION
  Report Type: 
  Country: None (occurrence: None)
  Receive Date: 20111118
  Receipt Date: 20111110
  Transmission Date: 20120403
  Serious: Yes (Death, Hospitalization, Other)
  Sender: FDA-Public Use
  Company Number: CA-ROCHE-1000669

PATIENT
  Sex: Male

DRUGS (5)
  1. PEGASYS [Suspect]
     Indication: HEPATITIS C
     Route: 058
     Dates: start: 20110817, end: 20111026
  2. COPEGUS [Suspect]
     Indication: HEPATITIS C
     Route: 048
     Dates: start: 20110817, end: 20111026
  3. PREDNISONE TAB [Concomitant]
     Indication: VASCULITIS
     Route: 048
  4. VICTRELIS [Suspect]
     Indication: HEPATITIS C
     Route: 048
     Dates: start: 20110901, end: 20111026
  5. EPREX [Concomitant]
     Dosage: 40,000 UNITS, FREQUENCY EVERY 5 DAYS
     Dates: start: 20110101

REACTIONS (9)
  - SEPTIC SHOCK [None]
  - CARDIAC ARREST [None]
  - STAPHYLOCOCCAL INFECTION [None]
  - DEEP VEIN THROMBOSIS [None]
  - CRYOGLOBULINAEMIA [None]
  - MYOCARDIAL INFARCTION [None]
  - ANAEMIA [None]
  - RED BLOOD CELL ABNORMALITY [None]
  - VASCULITIS [None]
